FAERS Safety Report 8750650 (Version 3)
Quarter: 2012Q4

REPORT INFORMATION
  Report Type: Spontaneous
  Country: US (occurrence: None)
  Receive Date: 20120813
  Receipt Date: 20120907
  Transmission Date: 20130627
  Serious: Yes (Other)
  Sender: FDA-Public Use
  Company Number: 2012SA056058

PATIENT
  Sex: Male

DRUGS (1)
  1. MENTHOL\METHYL SALICYLATE [Suspect]
     Dates: start: 201207

REACTIONS (3)
  - Application site burn [None]
  - Burns second degree [None]
  - Application site scar [None]
